FAERS Safety Report 14104261 (Version 10)
Quarter: 2020Q3

REPORT INFORMATION
  Report Type: Report from Study
  Country: KR (occurrence: KR)
  Receive Date: 20171018
  Receipt Date: 20181120
  Transmission Date: 20201105
  Serious: Yes (Hospitalization)
  Sender: FDA-Public Use
  Company Number: KR-JNJFOC-20171016531

PATIENT
  Age: 50 Year
  Sex: Male

DRUGS (4)
  1. IBRUTINIB [Suspect]
     Active Substance: IBRUTINIB
     Indication: GASTROINTESTINAL CANCER METASTATIC
     Route: 048
     Dates: start: 20170829, end: 20170919
  2. IBRUTINIB [Suspect]
     Active Substance: IBRUTINIB
     Indication: GASTROINTESTINAL CANCER METASTATIC
     Route: 048
     Dates: start: 20170918, end: 20171213
  3. DOCETAXEL. [Suspect]
     Active Substance: DOCETAXEL
     Indication: GASTROINTESTINAL CANCER METASTATIC
     Dosage: CUMULATIVE DOSE TO FIRST REACTION 1897.67395 MG/M2
     Route: 042
     Dates: start: 20170829, end: 20170919
  4. DOCETAXEL. [Suspect]
     Active Substance: DOCETAXEL
     Indication: GASTROINTESTINAL CANCER METASTATIC
     Dosage: CUMULATIVE DOSE TO FIRST REACTION 1897.67395 MG/M2
     Route: 042
     Dates: start: 20170919, end: 20171213

REACTIONS (4)
  - Melaena [Recovered/Resolved]
  - Tumour haemorrhage [Recovered/Resolved]
  - Melaena [Recovered/Resolved]
  - Gastrointestinal haemorrhage [Recovered/Resolved]

NARRATIVE: CASE EVENT DATE: 20171002
